FAERS Safety Report 6644099-0 (Version None)
Quarter: 2010Q1

REPORT INFORMATION
  Report Type: 
  Country: None (occurrence: None)
  Receive Date: 20100322
  Receipt Date: 20100310
  Transmission Date: 20100710
  Serious: Yes (Other)
  Sender: FDA-Public Use
  Company Number: PHHY2010IT14731

PATIENT
  Sex: Female

DRUGS (3)
  1. COTAREG [Suspect]
     Indication: HYPERTENSION
     Dosage: 160/12.5 MG
     Route: 048
     Dates: start: 20071201, end: 20091213
  2. LOBIVON [Suspect]
     Indication: HYPERTENSION
     Dosage: 5 MG, UNK
  3. LEVOTHYROXINE SODIUM [Concomitant]
     Dosage: 50 UG, UNK
     Route: 048

REACTIONS (4)
  - ASTHENIA [None]
  - DEPRESSION [None]
  - DIZZINESS [None]
  - URINARY TRACT INFECTION [None]
